FAERS Safety Report 5597393-9 (Version None)
Quarter: 2007Q4

REPORT INFORMATION
  Report Type: 
  Country: None (occurrence: None)
  Receive Date: 20071221
  Receipt Date: 20070828
  Transmission Date: 20080405
  Serious: No
  Sender: FDA-Public Use
  Company Number: SPV1-2007-03993

PATIENT
  Age: 31 Year
  Sex: Male
  Weight: 56.7 kg

DRUGS (3)
  1. VYVANSE [Suspect]
     Indication: ATTENTION DEFICIT/HYPERACTIVITY DISORDER
     Dosage: 50 MG, 1X/DAY:QD, ORAL
     Route: 047
     Dates: start: 20070822, end: 20070801
  2. LAMICTAL [Concomitant]
  3. ADDERALL XR 10 [Concomitant]

REACTIONS (7)
  - BACK PAIN [None]
  - DISCOMFORT [None]
  - MUSCLE TWITCHING [None]
  - MUSCULOSKELETAL PAIN [None]
  - OFF LABEL USE [None]
  - PSYCHOMOTOR HYPERACTIVITY [None]
  - SOCIAL PROBLEM [None]
